FAERS Safety Report 12449211 (Version 1)
Quarter: 2016Q2

REPORT INFORMATION
  Report Type: Report from Study
  Country: US (occurrence: US)
  Receive Date: 20160608
  Receipt Date: 20160608
  Transmission Date: 20160815
  Serious: Yes (Hospitalization)
  Sender: FDA-Public Use
  Company Number: US-CORCEPT THERAPEUTICS INC.-US-2016CRT000236

PATIENT

DRUGS (1)
  1. KORLYM [Suspect]
     Active Substance: MIFEPRISTONE
     Indication: PITUITARY-DEPENDENT CUSHING^S SYNDROME
     Dosage: UNK
     Dates: start: 201601, end: 2016

REACTIONS (5)
  - White blood cell count decreased [Unknown]
  - Blood potassium decreased [Unknown]
  - Noninfective gingivitis [Unknown]
  - Gingival pain [Unknown]
  - Anaemia [Unknown]

NARRATIVE: CASE EVENT DATE: 2016
